FAERS Safety Report 19511502 (Version 1)
Quarter: 2021Q3

REPORT INFORMATION
  Report Type: Spontaneous
  Country: TW (occurrence: TW)
  Receive Date: 20210709
  Receipt Date: 20210709
  Transmission Date: 20211014
  Serious: Yes (Hospitalization, Disabling, Other)
  Sender: FDA-Public Use
  Company Number: TW-LUPIN PHARMACEUTICALS INC.-2021-11255

PATIENT
  Age: 57 Year
  Sex: Female
  Weight: 42 kg

DRUGS (1)
  1. METRONIDAZOLE. [Suspect]
     Active Substance: METRONIDAZOLE
     Indication: VAGINAL INFECTION
     Dosage: 1000 MILLIGRAM, QD
     Route: 065

REACTIONS (3)
  - Blindness [Not Recovered/Not Resolved]
  - Optic neuropathy [Not Recovered/Not Resolved]
  - Myelitis [Not Recovered/Not Resolved]
